FAERS Safety Report 4445490-3 (Version None)
Quarter: 2004Q3

REPORT INFORMATION
  Report Type: 
  Country: None (occurrence: None)
  Receive Date: 20040812
  Receipt Date: 20040316
  Transmission Date: 20050211
  Serious: Yes (Hospitalization)
  Sender: FDA-Public Use
  Company Number: 200412138US

PATIENT
  Sex: Female

DRUGS (1)
  1. LASIX [Suspect]
     Indication: SWELLING
     Dosage: PO
     Route: 048

REACTIONS (1)
  - WEIGHT INCREASED [None]
